FAERS Safety Report 5397524-X (Version None)
Quarter: 2007Q3

REPORT INFORMATION
  Report Type: 
  Country: None (occurrence: None)
  Receive Date: 20070724
  Receipt Date: 20070724
  Transmission Date: 20080115
  Serious: Yes (Disabling)
  Sender: FDA-Public Use
  Company Number: None

PATIENT
  Age: 68 Year
  Sex: Female
  Weight: 74.4 kg

DRUGS (8)
  1. DEPODUR [Suspect]
     Indication: PAIN
     Dosage: 11 MG EPIDURAL
     Route: 008
     Dates: start: 20070312, end: 20070312
  2. ASPIRIN [Concomitant]
  3. DOCUSATE [Concomitant]
  4. CEFAZOLIN [Concomitant]
  5. ESOMEPRAZOLE MAGNESIUM [Concomitant]
  6. URSODIOL [Concomitant]
  7. CITALOPRAM HYDROBROMIDE [Concomitant]
  8. GLYCOPYRROLATE [Concomitant]

REACTIONS (4)
  - HYPOVENTILATION [None]
  - OXYGEN SATURATION DECREASED [None]
  - RESPIRATORY ACIDOSIS [None]
  - SEDATION [None]
